FAERS Safety Report 5747775-7 (Version None)
Quarter: 2008Q2

REPORT INFORMATION
  Report Type: 
  Country: None (occurrence: None)
  Receive Date: 20080523
  Receipt Date: 20080516
  Transmission Date: 20081010
  Serious: Yes (Other)
  Sender: FDA-Public Use
  Company Number: A0648714A

PATIENT
  Sex: Female

DRUGS (5)
  1. LAMICTAL [Suspect]
     Dosage: 50MG PER DAY
     Route: 048
     Dates: start: 20070325
  2. EFFEXOR [Concomitant]
  3. TOPAMAX [Concomitant]
  4. WELLBUTRIN XL [Concomitant]
  5. CLONOPIN [Concomitant]

REACTIONS (5)
  - APHASIA [None]
  - DIZZINESS [None]
  - MIGRAINE [None]
  - MYALGIA [None]
  - NAUSEA [None]
